FAERS Safety Report 6075406-8 (Version None)
Quarter: 2009Q1

REPORT INFORMATION
  Report Type: 
  Country: None (occurrence: None)
  Receive Date: 20090210
  Receipt Date: 20090210
  Transmission Date: 20090719
  Serious: Yes (Other)
  Sender: FDA-Public Use
  Company Number: None

PATIENT
  Sex: Female
  Weight: 68.0396 kg

DRUGS (4)
  1. ZOLOFT [Suspect]
     Indication: DEPRESSION
     Dosage: 1 Q AM PO
     Route: 048
     Dates: start: 19940601, end: 19941201
  2. PAXIL [Suspect]
     Indication: ANXIETY
     Dosage: 1 Q AM PO 4 MOS IN 1998
     Route: 048
  3. PAXIL [Suspect]
     Indication: DEPRESSION
     Dosage: 1 Q AM PO 4 MOS IN 1998
     Route: 048
  4. METOPROLOL [Concomitant]

REACTIONS (9)
  - ABDOMINAL PAIN LOWER [None]
  - ANXIETY [None]
  - DEPRESSION [None]
  - DIARRHOEA [None]
  - HYPOGLYCAEMIA [None]
  - NAUSEA [None]
  - PARAESTHESIA [None]
  - VENTRICULAR EXTRASYSTOLES [None]
  - WEIGHT DECREASED [None]
